FAERS Safety Report 19455957 (Version 1)
Quarter: 2021Q2

REPORT INFORMATION
  Report Type: Report from Study
  Country: US (occurrence: US)
  Receive Date: 20210624
  Receipt Date: 20210624
  Transmission Date: 20210717
  Serious: Yes (Death)
  Sender: FDA-Public Use
  Company Number: US-TAIHO ONCOLOGY  INC-EU-2021-01955

PATIENT
  Age: 74 Year
  Sex: Female

DRUGS (7)
  1. ZOFRAN [Concomitant]
     Active Substance: ONDANSETRON HYDROCHLORIDE
  2. LOSARTAN POTASSIUM. [Concomitant]
     Active Substance: LOSARTAN POTASSIUM
  3. TRAMADOL. [Concomitant]
     Active Substance: TRAMADOL
  4. DULCOLAX NOS [Concomitant]
     Active Substance: BISACODYL OR DOCUSATE SODIUM
  5. PROTONIX [Concomitant]
     Active Substance: PANTOPRAZOLE SODIUM
  6. XANAX [Concomitant]
     Active Substance: ALPRAZOLAM
  7. LONSURF [Suspect]
     Active Substance: TIPIRACIL HYDROCHLORIDE\TRIFLURIDINE
     Indication: COLON CANCER
     Dosage: CYCLE UNKNOWN
     Route: 048
     Dates: start: 20210422, end: 20210615

REACTIONS (1)
  - Death [Fatal]

NARRATIVE: CASE EVENT DATE: 20210615
